FAERS Safety Report 4616404-8 (Version None)
Quarter: 2005Q1

REPORT INFORMATION
  Report Type: 
  Country: None (occurrence: None)
  Receive Date: 20050321
  Receipt Date: 20050309
  Transmission Date: 20050727
  Serious: Yes (Hospitalization, Other)
  Sender: FDA-Public Use
  Company Number: 2003034896

PATIENT
  Age: 71 Year
  Sex: Male

DRUGS (8)
  1. PROCARDIA XL [Suspect]
     Indication: HYPERTENSION
     Dosage: 90 MG (1 IN 1 D), ORAL
     Route: 048
     Dates: start: 20021231
  2. ATENOLOL [Concomitant]
  3. HYDROCHLOROTHIAZIDE [Concomitant]
  4. DILTIAZEM [Concomitant]
  5. QUINAPRL HYDROCHLORIDE (QUINAPRIL HYDROCHLORIDE) [Concomitant]
  6. LISINOPRIL [Concomitant]
  7. ATORVASTATIN CALCIUM [Concomitant]
  8. ASPIRIN [Concomitant]

REACTIONS (7)
  - ABDOMINAL HERNIA [None]
  - BLOOD PRESSURE INCREASED [None]
  - CONSTIPATION [None]
  - DIARRHOEA [None]
  - DIVERTICULUM [None]
  - INTESTINAL HAEMORRHAGE [None]
  - INTESTINAL OBSTRUCTION [None]
